FAERS Safety Report 6382263-9 (Version None)
Quarter: 2009Q3

REPORT INFORMATION
  Report Type: 
  Country: None (occurrence: None)
  Receive Date: 20090925
  Receipt Date: 20090910
  Transmission Date: 20100115
  Serious: Yes (Other)
  Sender: FDA-Public Use
  Company Number: 09-383

PATIENT
  Sex: Female

DRUGS (5)
  1. ALEVE [Suspect]
     Indication: ARTHRITIS
     Dosage: ORAL
     Route: 048
     Dates: start: 20090819
  2. ALEVE [Suspect]
     Indication: ARTHRITIS
     Dosage: ORAL
     Route: 048
     Dates: start: 20090819
  3. ALEVE [Suspect]
     Indication: ARTHRITIS
     Dosage: ORAL
     Dates: start: 20090819
  4. BAYER ASPIRIN REGIMEN, UNK, BAYER HEALTHCARE [Suspect]
     Indication: PAIN
     Dosage: ORAL
     Route: 048
     Dates: start: 20090819
  5. BAYER ASPIRIN REGIMEN, UNK, BAYER HEALTHCARE [Suspect]
     Indication: PROPHYLAXIS
     Dosage: ORAL
     Route: 048
     Dates: start: 20090819

REACTIONS (4)
  - EYE DISORDER [None]
  - MOUTH HAEMORRHAGE [None]
  - NAUSEA [None]
  - RETINAL HAEMORRHAGE [None]
